FAERS Safety Report 8923611 (Version 1)
Quarter: 2012Q4

REPORT INFORMATION
  Report Type: 
  Country: BR (occurrence: BR)
  Receive Date: 20121123
  Receipt Date: 20121123
  Transmission Date: 20130627
  Serious: Yes (Other)
  Sender: FDA-Public Use
  Company Number: PHHY2012BR106744

PATIENT
  Sex: Female
  Weight: 80 kg

DRUGS (10)
  1. DIOVAN [Suspect]
     Indication: CARDIAC DISORDER
     Dosage: 1 tablet daily
     Route: 048
  2. DIOVAN [Suspect]
     Dosage: 0.5  tablet daily
     Route: 048
  3. ADEFORTE [Concomitant]
     Indication: VITAMIN SUPPLEMENTATION
     Dosage: 1 DF, QD
     Route: 048
  4. PURAN T4 [Concomitant]
     Indication: HYPERTHYROIDISM
     Dosage: 1 DF, QD
     Route: 048
  5. FUROSEMIDE [Concomitant]
     Indication: OEDEMA PERIPHERAL
     Dosage: 0.5 DF, QD
     Route: 048
  6. RIVOTRIL [Concomitant]
     Indication: SLEEP DISORDER
     Dosage: 0.5 DF, QD
     Route: 048
  7. NATRILIX [Concomitant]
     Dosage: UNK
     Route: 048
  8. GLUCOVANCE [Concomitant]
     Indication: DIABETES MELLITUS
     Dosage: 2 DF DAILY
     Route: 048
  9. GALVUS MET [Concomitant]
     Indication: DIABETES MELLITUS
     Dosage: 2 DF daily
     Route: 048
  10. ASPIRINA PREVENT [Concomitant]
     Indication: ANTICOAGULANT THERAPY
     Dosage: 1 tablet daily
     Route: 048

REACTIONS (7)
  - Cerebrovascular accident [Unknown]
  - Crying [Unknown]
  - Vomiting [Recovered/Resolved]
  - Blood glucose abnormal [Unknown]
  - Blood pressure decreased [Unknown]
  - Asthenia [Not Recovered/Not Resolved]
  - Wrong technique in drug usage process [Unknown]
